FAERS Safety Report 9521459 (Version 1)
Quarter: 2013Q1

REPORT INFORMATION
  Report Type: Spontaneous
  Country: US (occurrence: None)
  Receive Date: 20130305
  Receipt Date: 20130305
  Transmission Date: 20140127
  Serious: Yes (Hospitalization, Disabling)
  Sender: FDA-Public Use
  Company Number: 163-21880-12011593

PATIENT
  Age: 55 Year
  Sex: Male
  Weight: 56.7 kg

DRUGS (1)
  1. REVLIMID (LENALIDOMIDE) (CAPSULES) [Suspect]
     Indication: PLASMA CELL MYELOMA
     Dosage: 25 MG, 3 WEEKS ON , 1 WEEK OFF,  PO
     Route: 048
     Dates: start: 2006, end: 201012

REACTIONS (2)
  - Pancytopenia [None]
  - No therapeutic response [None]
